FAERS Safety Report 21085416 (Version 2)
Quarter: 2022Q3

REPORT INFORMATION
  Report Type: Spontaneous
  Country: AR (occurrence: AR)
  Receive Date: 20220714
  Receipt Date: 20220817
  Transmission Date: 20221026
  Serious: Yes (Death, Hospitalization, Other)
  Sender: FDA-Public Use
  Company Number: AR-ALXN-A202208203

PATIENT
  Sex: Male
  Weight: 150 kg

DRUGS (4)
  1. SOLIRIS [Suspect]
     Active Substance: ECULIZUMAB
     Dosage: UNK UNK, Q2W
     Route: 042
     Dates: start: 20211230
  2. SOLIRIS [Suspect]
     Active Substance: ECULIZUMAB
     Indication: Myasthenia gravis
     Dosage: UNK
     Route: 065
     Dates: start: 20211202
  3. MEPREDNISONE [Concomitant]
     Active Substance: MEPREDNISONE
     Indication: Product used for unknown indication
     Dosage: 30 MG, UNK
     Route: 065
     Dates: start: 2018
  4. PIRIDOSTIGMINA [Concomitant]
     Indication: Product used for unknown indication
     Dosage: 10 COMP/DAY
     Route: 065
     Dates: start: 2018

REACTIONS (1)
  - Myasthenia gravis crisis [Fatal]

NARRATIVE: CASE EVENT DATE: 20220120
